FAERS Safety Report 11503517 (Version 1)
Quarter: 2015Q3

REPORT INFORMATION
  Report Type: Spontaneous
  Country: US (occurrence: US)
  Receive Date: 20150914
  Receipt Date: 20150914
  Transmission Date: 20151125
  Serious: No
  Sender: FDA-Public Use
  Company Number: US-ASTELLAS-2015US025704

PATIENT
  Age: 81 Year
  Sex: Male

DRUGS (3)
  1. XTANDI [Suspect]
     Active Substance: ENZALUTAMIDE
     Indication: PROSTATE CANCER
     Dosage: 160 MG (4 CAPSULES), ONCE DAILY AS DIRECTED
     Route: 048
     Dates: end: 201504
  2. XTANDI [Suspect]
     Active Substance: ENZALUTAMIDE
     Dosage: 1 CAPSULE PER DAY WITH GRADUAL INCREASE TO 4 CAPSULES PER DAY
     Route: 048
  3. XTANDI [Suspect]
     Active Substance: ENZALUTAMIDE
     Dosage: 2 DF, ONCE DAILY (02 CAPSULE PER DAY)
     Route: 065

REACTIONS (3)
  - Rash [Recovered/Resolved]
  - Inappropriate schedule of drug administration [Unknown]
  - Underdose [Unknown]

NARRATIVE: CASE EVENT DATE: 201504
